FAERS Safety Report 8622135 (Version 1)
Quarter: 2020Q3

REPORT INFORMATION
  Report Type: Spontaneous
  Country: US (occurrence: None)
  Receive Date: 20120604
  Receipt Date: 20120604
  Transmission Date: 20201105
  Serious: Yes (Hospitalization)
  Sender: FDA-Public Use
  Company Number: IPC201205-000227

PATIENT
  Age: 79 Year
  Sex: Male

DRUGS (19)
  1. METOPROLOL TARTRATE. [Suspect]
     Active Substance: METOPROLOL TARTRATE
     Dosage: 200 MG
  2. INSULIN GLARGINE [Suspect]
     Active Substance: INSULIN GLARGINE
     Dosage: 70 U
  3. AMLODIPINE [Suspect]
     Active Substance: AMLODIPINE BESYLATE
     Dosage: 10 MG
  4. GEMFIBROZIL. [Suspect]
     Active Substance: GEMFIBROZIL
     Dosage: 600 MG TWO TIMES A DAY
  5. FUROSEMIDE. [Suspect]
     Active Substance: FUROSEMIDE
     Dosage: 40 MG
  6. FERROUS SULFATE. [Suspect]
     Active Substance: FERROUS SULFATE
     Dosage: 325 MG
  7. SODIUM POLYSTYRENE SULFONATE. [Suspect]
     Active Substance: SODIUM POLYSTYRENE SULFONATE
     Dosage: 30 G
  8. ERGOCALCIFEROL. [Suspect]
     Active Substance: ERGOCALCIFEROL
     Dosage: 50,000 U TWO TIMES A MONTH
  9. TRAVOPROST. [Suspect]
     Active Substance: TRAVOPROST
  10. MEPERIDINE [Suspect]
     Active Substance: MEPERIDINE
  11. MIDAZOLAM HYDROCHLORIDE. [Suspect]
     Active Substance: MIDAZOLAM HYDROCHLORIDE
  12. LISINOPRIL. [Suspect]
     Active Substance: LISINOPRIL
     Dosage: 20 MG
  13. FINASTERIDE. [Suspect]
     Active Substance: FINASTERIDE
     Dosage: 5 MG
  14. SIMVASTATIN. [Suspect]
     Active Substance: SIMVASTATIN
     Dosage: 20 MG DAILY FOR 1.5 YEARS, 40 MG DAILY FOR 9 MONTHS
  15. LEVOTHYROXINE. [Suspect]
     Active Substance: LEVOTHYROXINE
     Dosage: 88 UG
  16. ASPIRIN. [Suspect]
     Active Substance: ASPIRIN
     Dosage: 81 MG
  17. HYDRALAZINE [Suspect]
     Active Substance: HYDRALAZINE HYDROCHLORIDE
     Dosage: 100 MG IN DIVIDED DOSES
  18. DOXAZOSIN [Suspect]
     Active Substance: DOXAZOSIN MESYLATE
     Dosage: 8 MG
  19. LACTULOSE. [Suspect]
     Active Substance: LACTULOSE
     Indication: CONSTIPATION
     Dosage: 20 G AS NEEDED

REACTIONS (11)
  - Rhabdomyolysis [None]
  - Myopathy [None]
  - Ileus [None]
  - Tearfulness [None]
  - Gait disturbance [None]
  - Erosive duodenitis [None]
  - Anxiety [None]
  - Iron deficiency anaemia [None]
  - Respiratory rate increased [None]
  - Blood pressure systolic increased [None]
  - Renal impairment [None]
